FAERS Safety Report 4982407-7 (Version None)
Quarter: 2006Q2

REPORT INFORMATION
  Report Type: 
  Country: None (occurrence: None)
  Receive Date: 20060419
  Receipt Date: 20060410
  Transmission Date: 20061013
  Serious: Yes (Hospitalization)
  Sender: FDA-Public Use
  Company Number: 2006BI003421

PATIENT
  Age: 53 Year
  Sex: Female
  Weight: 77.1115 kg

DRUGS (7)
  1. AVONEX [Suspect]
     Indication: MULTIPLE SCLEROSIS
     Dosage: 30 UG, QW, IM
     Route: 030
     Dates: start: 20020101, end: 20030801
  2. AVONEX [Suspect]
     Indication: MULTIPLE SCLEROSIS
     Dosage: 30 UG, QW, IM
     Route: 030
     Dates: start: 20030801
  3. PEMOLINE [Concomitant]
  4. MULTI-VITAMIN [Concomitant]
  5. IRON [Concomitant]
  6. CALCIUM GLUCONATE [Concomitant]
  7. FLEXERIL [Concomitant]

REACTIONS (7)
  - BLOOD IRON DECREASED [None]
  - CONDITION AGGRAVATED [None]
  - DEVICE FAILURE [None]
  - FALL [None]
  - JOINT DISLOCATION [None]
  - MULTIPLE SCLEROSIS [None]
  - PARAPARESIS [None]
